FAERS Safety Report 16230150 (Version 1)
Quarter: 2019Q2

REPORT INFORMATION
  Report Type: Spontaneous
  Country: US (occurrence: US)
  Receive Date: 20190423
  Receipt Date: 20190423
  Transmission Date: 20190711
  Serious: No
  Sender: FDA-Public Use
  Company Number: US-FOUNDATIONCONSUMERHC-2019-US-000028

PATIENT
  Age: 23 Year
  Sex: Female
  Weight: 47.63 kg

DRUGS (2)
  1. UNSPECIFIED ORAL BIRTH CONTROL [Concomitant]
     Active Substance: UNSPECIFIED INGREDIENT
     Route: 048
  2. PLAN B ONE-STEP [Suspect]
     Active Substance: LEVONORGESTREL
     Indication: POST COITAL CONTRACEPTION
     Dosage: 1.5MG
     Route: 048
     Dates: start: 20190101, end: 20190101

REACTIONS (2)
  - Vomiting [Recovered/Resolved]
  - Abdominal pain upper [Recovering/Resolving]

NARRATIVE: CASE EVENT DATE: 20190101
